FAERS Safety Report 9668399 (Version 2)
Quarter: 2013Q4

REPORT INFORMATION
  Report Type: Spontaneous
  Country: US (occurrence: US)
  Receive Date: 20131104
  Receipt Date: 20131223
  Transmission Date: 20140711
  Serious: No
  Sender: FDA-Public Use
  Company Number: US-TEVA-442468USA

PATIENT
  Age: 27 Year
  Sex: Female
  Weight: 76.73 kg

DRUGS (2)
  1. PARAGARD 380A [Suspect]
     Indication: CONTRACEPTION
     Route: 015
     Dates: start: 20131021, end: 20131025
  2. PRENATAL VITAMINS [Concomitant]

REACTIONS (4)
  - Vulvovaginal discomfort [Recovered/Resolved]
  - Device expulsion [Recovered/Resolved]
  - Vaginal discharge [Recovered/Resolved]
  - Discomfort [Recovered/Resolved]
